FAERS Safety Report 9523104 (Version 1)
Quarter: 2013Q3

REPORT INFORMATION
  Report Type: Report from Study
  Country: RU (occurrence: RU)
  Receive Date: 20130913
  Receipt Date: 20130913
  Transmission Date: 20140515
  Serious: Yes (Other)
  Sender: FDA-Public Use
  Company Number: RU-BRISTOL-MYERS SQUIBB COMPANY-19364215

PATIENT
  Age: 60 Year
  Sex: Female

DRUGS (4)
  1. PACLITAXEL [Suspect]
     Indication: BREAST CANCER METASTATIC
     Dosage: LAST DOSE: 15AUG13
     Route: 042
     Dates: start: 20130417, end: 20130815
  2. BLINDED: BEVACIZUMAB [Suspect]
     Indication: BREAST CANCER METASTATIC
     Route: 042
     Dates: start: 20130417, end: 20130815
  3. BLINDED: PLACEBO [Suspect]
     Indication: BREAST CANCER METASTATIC
     Route: 042
     Dates: start: 20130417, end: 20130815
  4. TRAMADOL [Concomitant]
     Dates: start: 20130116

REACTIONS (1)
  - Gastric cancer [Not Recovered/Not Resolved]
